FAERS Safety Report 19274526 (Version 1)
Quarter: 2021Q2

REPORT INFORMATION
  Report Type: Spontaneous
  Country: AT (occurrence: AT)
  Receive Date: 20210519
  Receipt Date: 20210519
  Transmission Date: 20210717
  Serious: Yes (Hospitalization)
  Sender: FDA-Public Use
  Company Number: AT-UNICHEM PHARMACEUTICALS (USA) INC-UCM202105-000435

PATIENT
  Age: 22 Year
  Sex: Male
  Weight: 90 kg

DRUGS (4)
  1. HYDROCHLOROTHIAZIDE. [Suspect]
     Active Substance: HYDROCHLOROTHIAZIDE
     Indication: PRODUCT USED FOR UNKNOWN INDICATION
  2. HYDROCHLOROTHIAZIDE. [Suspect]
     Active Substance: HYDROCHLOROTHIAZIDE
  3. TRIAMTERENE. [Suspect]
     Active Substance: TRIAMTERENE
     Indication: PRODUCT USED FOR UNKNOWN INDICATION
  4. TRIAMTERENE. [Suspect]
     Active Substance: TRIAMTERENE

REACTIONS (11)
  - Urinary retention [Recovered/Resolved]
  - Quadriparesis [Recovered/Resolved]
  - Hypokalaemia [Recovering/Resolving]
  - Hyperglycaemia [Recovering/Resolving]
  - Hypertension [Recovering/Resolving]
  - Intentional product misuse [Unknown]
  - Muscle spasms [Recovering/Resolving]
  - Blood creatine phosphokinase increased [Recovering/Resolving]
  - Sensory disturbance [Recovered/Resolved]
  - Electrocardiogram QT prolonged [Recovering/Resolving]
  - Transaminases increased [Recovering/Resolving]
